FAERS Safety Report 21344266 (Version 1)
Quarter: 2022Q3

REPORT INFORMATION
  Report Type: Report from Study
  Country: CA (occurrence: CA)
  Receive Date: 20220916
  Receipt Date: 20220916
  Transmission Date: 20221026
  Serious: Yes (Other)
  Sender: FDA-Public Use
  Company Number: CA-BRISTOL-MYERS SQUIBB COMPANY-2022-106636

PATIENT
  Age: 52 Year
  Sex: Female

DRUGS (7)
  1. DASATINIB [Suspect]
     Active Substance: DASATINIB
     Indication: Chronic myeloid leukaemia
     Route: 065
  2. BOSUTINIB [Concomitant]
     Active Substance: BOSUTINIB
     Indication: Chronic myeloid leukaemia
  3. IMATINIB MESYLATE [Concomitant]
     Active Substance: IMATINIB MESYLATE
     Indication: Chronic myeloid leukaemia
  4. TASIGNA [Concomitant]
     Active Substance: NILOTINIB
     Indication: Chronic myeloid leukaemia
  5. TASIGNA [Concomitant]
     Active Substance: NILOTINIB
  6. TASIGNA [Concomitant]
     Active Substance: NILOTINIB
     Route: 048
  7. TASIGNA [Concomitant]
     Active Substance: NILOTINIB
     Route: 048

REACTIONS (11)
  - Abdominal pain upper [Unknown]
  - Blood bilirubin increased [Unknown]
  - Bone pain [Unknown]
  - Cytogenetic analysis abnormal [Unknown]
  - Drug ineffective [Unknown]
  - Headache [Unknown]
  - Jaundice [Unknown]
  - Malaise [Unknown]
  - Palpitations [Unknown]
  - Rash maculo-papular [Unknown]
  - Throat irritation [Unknown]
